FAERS Safety Report 11062579 (Version 2)
Quarter: 2015Q2

REPORT INFORMATION
  Report Type: Report from Study
  Country: AU (occurrence: AU)
  Receive Date: 20150424
  Receipt Date: 20150429
  Transmission Date: 20150821
  Serious: Yes (Hospitalization)
  Sender: FDA-Public Use
  Company Number: AU-MERCK-1504AUS018381

PATIENT
  Age: 52 Year
  Sex: Female
  Weight: 78.4 kg

DRUGS (9)
  1. PANTOPRAZOLE [Concomitant]
     Active Substance: PANTOPRAZOLE SODIUM
     Indication: GASTROOESOPHAGEAL REFLUX DISEASE
     Dosage: 40 MG, QD
     Route: 048
     Dates: start: 201402
  2. PEMBROLIZUMAB. [Suspect]
     Active Substance: PEMBROLIZUMAB
     Dosage: 10 MG/KG, QOW
     Route: 042
     Dates: start: 20150220, end: 20150220
  3. COLOXYL WITH SENNA [Concomitant]
     Active Substance: DOCUSATE\SENNOSIDES
     Indication: CONSTIPATION PROPHYLAXIS
     Dosage: TOTAL DAILY DOSE 2 TABLET, PRN
     Route: 048
     Dates: start: 201402
  4. OSMOLAX (POLYETHYLENE GLYCOL 3350) [Concomitant]
     Indication: CONSTIPATION PROPHYLAXIS
     Dosage: 2 PACKET, BID
     Route: 048
     Dates: start: 20140207
  5. IBUPROFEN. [Concomitant]
     Active Substance: IBUPROFEN
     Indication: CANCER PAIN
     Dosage: TOTAL DAILY DOSE 400MG, PRN
     Route: 048
     Dates: start: 20140408
  6. PREDNISONE. [Concomitant]
     Active Substance: PREDNISONE
     Indication: FACE OEDEMA
     Dosage: 10 MG, QD
     Route: 048
     Dates: start: 20150216
  7. LORATADINE. [Concomitant]
     Active Substance: LORATADINE
     Indication: PRURITUS
     Dosage: TOTAL DAILY DOSE 10MG, PRN
     Route: 048
     Dates: start: 20140606
  8. PEMBROLIZUMAB. [Suspect]
     Active Substance: PEMBROLIZUMAB
     Indication: METASTATIC MALIGNANT MELANOMA
     Dosage: 10 MG/KG, QOW
     Route: 042
     Dates: start: 20140214, end: 20141205
  9. FERROGRAD C (FERROUS SULFATE (+) SODIUM ASCORBATE) [Concomitant]
     Indication: IRON DEFICIENCY ANAEMIA
     Dosage: 1 TABLET, QD
     Route: 048
     Dates: start: 201401

REACTIONS (1)
  - Autoimmune hepatitis [Not Recovered/Not Resolved]

NARRATIVE: CASE EVENT DATE: 20150417
